FAERS Safety Report 9303818 (Version 2)
Quarter: 2013Q2

REPORT INFORMATION
  Report Type: Report from Study
  Country: US (occurrence: US)
  Receive Date: 20130522
  Receipt Date: 20130530
  Transmission Date: 20140414
  Serious: Yes (Hospitalization, Other)
  Sender: FDA-Public Use
  Company Number: US-ABBOTT-13P-163-1068484-00

PATIENT
  Age: 60 Year
  Sex: Female
  Weight: 49.94 kg

DRUGS (3)
  1. HUMIRA [Suspect]
     Indication: RHEUMATOID ARTHRITIS
     Dates: start: 2011
  2. HUMIRA [Suspect]
  3. METHOTREXATE [Concomitant]
     Indication: RHEUMATOID ARTHRITIS

REACTIONS (6)
  - Swelling [Unknown]
  - Wrist fracture [Recovered/Resolved]
  - Wrist fracture [Recovered/Resolved]
  - Arthritis [Unknown]
  - Bone disorder [Unknown]
  - Calcinosis [Unknown]
